FAERS Safety Report 4677969-3 (Version None)
Quarter: 2005Q2

REPORT INFORMATION
  Report Type: 
  Country: None (occurrence: None)
  Receive Date: 20050531
  Receipt Date: 20050506
  Transmission Date: 20051028
  Serious: Yes (Hospitalization)
  Sender: FDA-Public Use
  Company Number: HQWYE627710MAY05

PATIENT
  Sex: Female

DRUGS (3)
  1. ENBREL [Suspect]
     Indication: RHEUMATOID ARTHRITIS
     Dosage: 25 MG AT UNKNOWN FREQUENCY
     Route: 058
     Dates: start: 20050419, end: 20050503
  2. ALLOPURINOL [Concomitant]
  3. IMMUNOSUPPRESSANTS [Concomitant]
     Dates: start: 20050419

REACTIONS (2)
  - APPLICATION SITE ERYTHEMA [None]
  - EXANTHEM [None]
